FAERS Safety Report 6728567-9 (Version None)
Quarter: 2010Q2

REPORT INFORMATION
  Report Type: 
  Country: None (occurrence: None)
  Receive Date: 20100517
  Receipt Date: 20100505
  Transmission Date: 20101027
  Serious: Yes (Death)
  Sender: FDA-Public Use
  Company Number: US-PFIZER INC-2010002781

PATIENT
  Sex: Male

DRUGS (2)
  1. SUTENT [Suspect]
     Indication: RENAL CELL CARCINOMA
     Dosage: 25 MG, UNK
     Dates: start: 20091101, end: 20091201
  2. OXYCODONE HCL AND ACETAMINOPHEN [Concomitant]

REACTIONS (3)
  - DISEASE PROGRESSION [None]
  - HEPATIC FAILURE [None]
  - RENAL CELL CARCINOMA [None]
